FAERS Safety Report 15595847 (Version 1)
Quarter: 2018Q4

REPORT INFORMATION
  Report Type: Spontaneous
  Country: US (occurrence: US)
  Receive Date: 20181107
  Receipt Date: 20181107
  Transmission Date: 20190205
  Serious: Yes (Other)
  Sender: FDA-Public Use
  Company Number: US-LEXICON PHARMACEUTICALS, INC-18-1606-01391

PATIENT
  Sex: Male

DRUGS (19)
  1. CAL-CITRATE PLUS [Concomitant]
  2. AMLODIPINE [Concomitant]
     Active Substance: AMLODIPINE BESYLATE
  3. VITAMIN C [Concomitant]
     Active Substance: ASCORBIC ACID
  4. TELOTRISTAT ETHYL [Suspect]
     Active Substance: TELOTRISTAT ETHYL
     Indication: CARCINOID SYNDROME
     Route: 048
     Dates: start: 201808
  5. EZETIMIBE. [Concomitant]
     Active Substance: EZETIMIBE
  6. LORAZEPAM. [Concomitant]
     Active Substance: LORAZEPAM
  7. LOPERAMIDE [Concomitant]
     Active Substance: LOPERAMIDE
  8. ASPIRIN. [Concomitant]
     Active Substance: ASPIRIN
  9. BASAGLAR [Concomitant]
     Active Substance: INSULIN GLARGINE
  10. LOMOTIL [Concomitant]
     Active Substance: ATROPINE SULFATE\DIPHENOXYLATE HYDROCHLORIDE
  11. CLOPIDOGREL BISULFATE. [Concomitant]
     Active Substance: CLOPIDOGREL BISULFATE
  12. FISH OIL [Concomitant]
     Active Substance: FISH OIL
  13. COENZYME Q10 [Concomitant]
     Active Substance: UBIDECARENONE
  14. METFORMIN [Concomitant]
     Active Substance: METFORMIN HYDROCHLORIDE
  15. NOVOLOG [Concomitant]
     Active Substance: INSULIN ASPART
  16. SIMVASTATIN. [Concomitant]
     Active Substance: SIMVASTATIN
  17. TEMAZEPAM. [Concomitant]
     Active Substance: TEMAZEPAM
  18. VENLAFAXINE [Concomitant]
     Active Substance: VENLAFAXINE HYDROCHLORIDE
  19. MULTIVITAMIN [Concomitant]
     Active Substance: VITAMINS

REACTIONS (4)
  - Metastases to bone [Not Recovered/Not Resolved]
  - Metastases to liver [Not Recovered/Not Resolved]
  - Flushing [Not Recovered/Not Resolved]
  - Defaecation urgency [Not Recovered/Not Resolved]

NARRATIVE: CASE EVENT DATE: 2018
